FAERS Safety Report 10028947 (Version 2)
Quarter: 2014Q2

REPORT INFORMATION
  Report Type: Spontaneous
  Country: US (occurrence: US)
  Receive Date: 20140321
  Receipt Date: 20140418
  Transmission Date: 20141212
  Serious: Yes (Other)
  Sender: FDA-Public Use
  Company Number: US-BRISTOL-MYERS SQUIBB COMPANY-20561916

PATIENT
  Sex: 0

DRUGS (2)
  1. ABILIFY [Suspect]
  2. RISPERIDAL [Suspect]

REACTIONS (2)
  - Reproductive tract disorder [Unknown]
  - Mental status changes [Unknown]
